FAERS Safety Report 17884603 (Version 1)
Quarter: 2020Q2

REPORT INFORMATION
  Report Type: Spontaneous
  Country: GB (occurrence: GB)
  Receive Date: 20200611
  Receipt Date: 20200611
  Transmission Date: 20200714
  Serious: Yes (Life-Threatening, Other)
  Sender: FDA-Public Use
  Company Number: GB-TEVA-2020-GB-1246437

PATIENT
  Age: 18 Year
  Sex: Female
  Weight: 57 kg

DRUGS (6)
  1. SUMATRIPTAN. [Suspect]
     Active Substance: SUMATRIPTAN
     Indication: MIGRAINE
     Dosage: ONE AS SOON AS POSSIBLE AFTER ONSET.. DOSE CAN BE REPEATED AFTER 2 HOURS.UNIT DOSE :50 MILLIGRAM
     Route: 048
     Dates: start: 20200512
  2. ZINERYT [Concomitant]
     Indication: ACNE
     Dosage: TO BE APPLIED ONCE OR TWICE A DAY
     Dates: start: 20200318
  3. LUCETTE [Concomitant]
     Active Substance: DROSPIRENONE\ETHINYL ESTRADIOL
     Dosage: FOR 21 DAYS FOLLOWED BY 7 TABLET FREE DAYS, 0.03MG/3MG, UNIT DOSE:1 DOSAGEFORM
     Dates: start: 20200423
  4. CETRABEN EMOLLIENT CREAM [Concomitant]
     Dosage: UP TO THREE TIMES A DAY
     Dates: start: 20200221
  5. ADAPALENE. [Concomitant]
     Active Substance: ADAPALENE
     Indication: ACNE
     Dosage: APPLY AT NIGHT
     Dates: start: 20200318
  6. IBUPROFEN. [Concomitant]
     Active Substance: IBUPROFEN
     Dosage: 3 EVERY DAY FOR ACUTE ATTACK MAX 6 PER DAY:UNIT DOSE :200 MILLIGRAM
     Dates: start: 20200512

REACTIONS (1)
  - Swelling [Recovered/Resolved]

NARRATIVE: CASE EVENT DATE: 20200514
